FAERS Safety Report 18541826 (Version 1)
Quarter: 2020Q4

REPORT INFORMATION
  Report Type: Spontaneous
  Country: CA (occurrence: CA)
  Receive Date: 20201125
  Receipt Date: 20201125
  Transmission Date: 20210114
  Serious: Yes (Hospitalization)
  Sender: FDA-Public Use
  Company Number: CA-AMGEN-CANSP2020186980

PATIENT
  Age: 73 Year
  Sex: Female

DRUGS (2)
  1. PRED [PREDNISOLONE] [Concomitant]
     Indication: SARCOIDOSIS
     Dosage: 10 MILLIGRAM, QD
  2. PROLIA [Suspect]
     Active Substance: DENOSUMAB
     Indication: PRODUCT USED FOR UNKNOWN INDICATION
     Dosage: UNK
     Route: 065
     Dates: start: 20200708

REACTIONS (5)
  - Vomiting [Unknown]
  - Diarrhoea [Unknown]
  - Stress cardiomyopathy [Unknown]
  - Hypocalcaemia [Unknown]
  - Hypoparathyroidism [Unknown]

NARRATIVE: CASE EVENT DATE: 2020
